FAERS Safety Report 19839336 (Version 1)
Quarter: 2021Q3

REPORT INFORMATION
  Report Type: Spontaneous
  Country: US (occurrence: US)
  Receive Date: 20210916
  Receipt Date: 20210916
  Transmission Date: 20211014
  Serious: No
  Sender: FDA-Public Use
  Company Number: US-ALLERGAN-2120794US

PATIENT
  Age: 60 Year
  Sex: Female
  Weight: 66.2 kg

DRUGS (4)
  1. FETZIMA [Suspect]
     Active Substance: LEVOMILNACIPRAN HYDROCHLORIDE
     Indication: ANXIETY
     Dosage: 40 MG, QAM
     Route: 048
     Dates: start: 20210517, end: 20210523
  2. UNSPECIFIED MEDICATIONS ON AND OFF [Concomitant]
     Indication: ANXIETY
  3. UNSPECIFIED MEDICATIONS ON AND OFF [Concomitant]
     Indication: DEPRESSION
  4. FETZIMA [Suspect]
     Active Substance: LEVOMILNACIPRAN HYDROCHLORIDE
     Indication: DEPRESSION

REACTIONS (2)
  - Off label use [Unknown]
  - Product dose omission issue [Unknown]

NARRATIVE: CASE EVENT DATE: 20210517
